FAERS Safety Report 4959481-7 (Version None)
Quarter: 2006Q1

REPORT INFORMATION
  Report Type: 
  Country: None (occurrence: None)
  Receive Date: 20060331
  Receipt Date: 20041012
  Transmission Date: 20060701
  Serious: Yes (Hospitalization, Disabling, Other)
  Sender: FDA-Public Use
  Company Number: US-MERCK-0410USA01804

PATIENT
  Age: 52 Year
  Sex: Male
  Weight: 109 kg

DRUGS (8)
  1. VIOXX [Suspect]
     Indication: OSTEOARTHRITIS
     Route: 048
     Dates: start: 20000324, end: 20040930
  2. KLONOPIN [Concomitant]
     Route: 065
  3. GLUCOPHAGE [Concomitant]
     Route: 065
     Dates: start: 19991101
  4. NEXIUM [Concomitant]
     Route: 065
  5. VIOXX [Suspect]
     Indication: ARTHRITIS
     Route: 048
     Dates: start: 20000324, end: 20040930
  6. NEURONTIN [Concomitant]
     Indication: NEUROPATHY PERIPHERAL
     Route: 065
     Dates: start: 19990101
  7. MAGNESIUM SULFATE [Concomitant]
     Route: 065
  8. EFFEXOR XR [Concomitant]
     Route: 065

REACTIONS (23)
  - ABDOMINAL ABSCESS [None]
  - ABDOMINAL PAIN [None]
  - ASTHENIA [None]
  - BACK PAIN [None]
  - CARDIAC DISORDER [None]
  - CEREBRAL ARTERY OCCLUSION [None]
  - CEREBRAL INFARCTION [None]
  - CEREBROVASCULAR ACCIDENT [None]
  - COORDINATION ABNORMAL [None]
  - DISORIENTATION [None]
  - DUODENITIS [None]
  - EMOTIONAL DISTRESS [None]
  - GASTRITIS [None]
  - HEMIPARESIS [None]
  - HEMIPLEGIA [None]
  - INTERMITTENT CLAUDICATION [None]
  - MUSCULOSKELETAL CHEST PAIN [None]
  - NEPHROLITHIASIS [None]
  - POSITRON EMISSION TOMOGRAM ABNORMAL [None]
  - RADICULOPATHY [None]
  - SHOULDER PAIN [None]
  - SINUSITIS [None]
  - SUICIDE ATTEMPT [None]
